FAERS Safety Report 17999438 (Version 1)
Quarter: 2020Q3

REPORT INFORMATION
  Report Type: Spontaneous
  Country: US (occurrence: US)
  Receive Date: 20200708
  Receipt Date: 20200708
  Transmission Date: 20201103
  Serious: No
  Sender: FDA-Public Use
  Company Number: None

PATIENT
  Age: 38 Year
  Sex: Male

DRUGS (1)
  1. TYKERB [Suspect]
     Active Substance: LAPATINIB DITOSYLATE
     Route: 048
     Dates: start: 202003

REACTIONS (2)
  - Brain neoplasm [None]
  - Therapy interrupted [None]

NARRATIVE: CASE EVENT DATE: 20200708
